FAERS Safety Report 26187706 (Version 1)
Quarter: 2025Q4

REPORT INFORMATION
  Report Type: Spontaneous
  Country: CA (occurrence: CA)
  Receive Date: 20251222
  Receipt Date: 20251222
  Transmission Date: 20260117
  Serious: Yes (Death, Life-Threatening, Hospitalization, Disabling, Congenital Anomaly, Other)
  Sender: SANDOZ
  Company Number: CA-HALEON-2279381

PATIENT
  Age: 43 Year
  Sex: Female
  Weight: 68 kg

DRUGS (87)
  1. DICLOFENAC POTASSIUM [Suspect]
     Active Substance: DICLOFENAC POTASSIUM
     Indication: Product used for unknown indication
     Dosage: UNK
  2. DICLOFENAC POTASSIUM [Suspect]
     Active Substance: DICLOFENAC POTASSIUM
     Dosage: ROUTE: UNKNOWN
  3. ERELZI [Suspect]
     Active Substance: ETANERCEPT-SZZS
     Indication: Rheumatoid arthritis
     Dosage: ROUTE: UNKNOWN
  4. DICLOFENAC SODIUM [Suspect]
     Active Substance: DICLOFENAC SODIUM
     Indication: Product used for unknown indication
     Dosage: ROUTE: UNKNOWN
  5. DICLOFENAC SODIUM [Suspect]
     Active Substance: DICLOFENAC SODIUM
     Dosage: ROUTE: UNKNOWN
  6. CANDESARTAN [Suspect]
     Active Substance: CANDESARTAN
     Indication: Migraine
     Dosage: UNK
  7. LEFLUNOMIDE [Suspect]
     Active Substance: LEFLUNOMIDE
     Indication: Rheumatoid arthritis
     Dosage: 20 MG
  8. LEFLUNOMIDE [Suspect]
     Active Substance: LEFLUNOMIDE
     Indication: Product used for unknown indication
     Dosage: ROUTE: UNKNOWN
  9. LEFLUNOMIDE [Suspect]
     Active Substance: LEFLUNOMIDE
     Dosage: ROUTE: UNKNOWN
  10. MYCOPHENOLATE MOFETIL [Suspect]
     Active Substance: MYCOPHENOLATE MOFETIL
     Indication: Product used for unknown indication
     Dosage: ROUTE: UNKNOWN
  11. OXYCODONE HYDROCHLORIDE [Suspect]
     Active Substance: OXYCODONE HYDROCHLORIDE
     Indication: Product used for unknown indication
     Dosage: UNK
  12. QUETIAPINE FUMARATE [Suspect]
     Active Substance: QUETIAPINE FUMARATE
     Indication: Product used for unknown indication
     Dosage: UNK
  13. ADALIMUMAB [Suspect]
     Active Substance: ADALIMUMAB
     Indication: Rheumatoid arthritis
     Dosage: 4 MG
  14. ADALIMUMAB [Suspect]
     Active Substance: ADALIMUMAB
     Indication: Product used for unknown indication
     Dosage: DOSE FORM: SOLUTION SUBCUTANEOUS
  15. ADALIMUMAB [Suspect]
     Active Substance: ADALIMUMAB
  16. ALENDRONATE SODIUM [Suspect]
     Active Substance: ALENDRONATE SODIUM
     Indication: Rheumatoid arthritis
     Dosage: 5 MG
  17. ALENDRONATE SODIUM [Suspect]
     Active Substance: ALENDRONATE SODIUM
     Dosage: UNK
  18. RITUXIMAB [Suspect]
     Active Substance: RITUXIMAB
     Indication: Rheumatoid arthritis
     Dosage: UNK
  19. RITUXIMAB [Suspect]
     Active Substance: RITUXIMAB
     Indication: Product used for unknown indication
     Dosage: ROUTE: INTRAVENOUS BOLUS
  20. RITUXIMAB [Suspect]
     Active Substance: RITUXIMAB
     Dosage: UNK
  21. RITUXIMAB [Suspect]
     Active Substance: RITUXIMAB
     Dosage: UNK
  22. RITUXIMAB [Suspect]
     Active Substance: RITUXIMAB
     Dosage: UNK
  23. RITUXIMAB [Suspect]
     Active Substance: RITUXIMAB
     Dosage: ROUTE: UNKNOWN
  24. PANTOPRAZOLE SODIUM [Suspect]
     Active Substance: PANTOPRAZOLE SODIUM
     Indication: Dyspepsia
     Dosage: 3 DOSAGE FORM
  25. PANTOPRAZOLE SODIUM [Suspect]
     Active Substance: PANTOPRAZOLE SODIUM
     Indication: Product used for unknown indication
     Dosage: ROUTE: UNKNOWN
  26. PANTOPRAZOLE SODIUM [Suspect]
     Active Substance: PANTOPRAZOLE SODIUM
     Dosage: 2 DOSAGE FORM
  27. PANTOPRAZOLE SODIUM [Suspect]
     Active Substance: PANTOPRAZOLE SODIUM
     Dosage: 1 DOSAGE FORM
  28. HYDROCORTISONE [Suspect]
     Active Substance: HYDROCORTISONE
     Indication: Rheumatoid arthritis
     Dosage: ROUTE: UNKNOWN
  29. RAMIPRIL [Suspect]
     Active Substance: RAMIPRIL
     Indication: Product used for unknown indication
     Dosage: ROUTE: UNKNOW
  30. TOPIRAMATE [Suspect]
     Active Substance: TOPIRAMATE
     Indication: Product used for unknown indication
     Dosage: ROUTE: UNKNOWN
  31. TOPIRAMATE [Suspect]
     Active Substance: TOPIRAMATE
     Dosage: ROUTE: UNKNOWN
  32. METHOTREXATE [Suspect]
     Active Substance: METHOTREXATE
     Indication: Product used for unknown indication
     Dosage: 25 MG, QD
  33. METHOTREXATE [Suspect]
     Active Substance: METHOTREXATE
     Dosage: ROUTE: PARENTERAL
  34. METHOTREXATE [Suspect]
     Active Substance: METHOTREXATE
     Dosage: 25 MG, QW
  35. METHOTREXATE [Suspect]
     Active Substance: METHOTREXATE
     Dosage: 25 MG
  36. METHOTREXATE [Suspect]
     Active Substance: METHOTREXATE
     Dosage: ROUTE: INTRA-ARTERIAL
  37. METHOTREXATE [Suspect]
     Active Substance: METHOTREXATE
     Dosage: ROUTE: INTRA-ARTERIAL
  38. METHOTREXATE [Suspect]
     Active Substance: METHOTREXATE
     Dosage: ROUTE: UNKNOWN
  39. METHOTREXATE [Suspect]
     Active Substance: METHOTREXATE
     Dosage: 20 MG, QD
  40. METHOTREXATE [Suspect]
     Active Substance: METHOTREXATE
     Dosage: ROUTE: UNKNOWN
  41. METHOTREXATE [Suspect]
     Active Substance: METHOTREXATE
     Dosage: 1 G
  42. METHOTREXATE [Suspect]
     Active Substance: METHOTREXATE
     Dosage: 1 DF, QD
  43. METHOTREXATE [Suspect]
     Active Substance: METHOTREXATE
     Dosage: ROUTE: UNKNOWN
  44. METHOTREXATE [Suspect]
     Active Substance: METHOTREXATE
     Dosage: 200 MG
  45. METHOTREXATE [Suspect]
     Active Substance: METHOTREXATE
     Dosage: ROUTE: UNKNOWN
  46. METHOTREXATE [Suspect]
     Active Substance: METHOTREXATE
     Dosage: ROUTE: INTRA-ARTERIAL
  47. METHOTREXATE [Suspect]
     Active Substance: METHOTREXATE
     Dosage: 25 MG, QW
  48. METHOTREXATE [Suspect]
     Active Substance: METHOTREXATE
     Dosage: 15 MG, QD
  49. METHOTREXATE [Suspect]
     Active Substance: METHOTREXATE
     Dosage: 40 MG
  50. VOLTAREN [Suspect]
     Active Substance: DICLOFENAC SODIUM
     Indication: Product used for unknown indication
     Dosage: UNK (ROUTE: UNKNOWN)
  51. AIMOVIG [Suspect]
     Active Substance: ERENUMAB-AOOE
     Indication: Migraine
     Dosage: DOSE FORM: SOLUTION ROUTE: UNKNOWN
  52. COSENTYX [Suspect]
     Active Substance: SECUKINUMAB
     Indication: Rheumatoid arthritis
     Dosage: DOSE FORM: SOLUTION FOR INJECTION IN PREFILLED PEN
  53. COSENTYX [Suspect]
     Active Substance: SECUKINUMAB
     Indication: Psoriatic arthropathy
     Dosage: ROUTE: UNKNOWN
  54. DICLOFENAC [Suspect]
     Active Substance: DICLOFENAC
     Indication: Product used for unknown indication
     Dosage: ROUTE: UNKNOWN
  55. CORTISONE [Suspect]
     Active Substance: CORTISONE
     Indication: Product used for unknown indication
     Dosage: ROUTE: UNKNOWN
  56. CORTISONE [Suspect]
     Active Substance: CORTISONE
     Dosage: ROUTE: UNKNOWN
  57. CORTISONE [Suspect]
     Active Substance: CORTISONE
     Dosage: ROUTE: UNKNOWN
  58. DOMPERIDONE [Suspect]
     Active Substance: DOMPERIDONE
     Indication: Product used for unknown indication
     Dosage: ROUTE: UNKNOWN
  59. DOMPERIDONE [Suspect]
     Active Substance: DOMPERIDONE
     Dosage: ROUTE: UNKNOWN
  60. DOMPERIDONE MALEATE [Suspect]
     Active Substance: DOMPERIDONE MALEATE
     Indication: Product used for unknown indication
     Dosage: ROUTE: UNKNOWN
  61. FOLIC ACID [Suspect]
     Active Substance: FOLIC ACID
     Indication: Rheumatoid arthritis
     Dosage: 500 MG
  62. FOLIC ACID [Suspect]
     Active Substance: FOLIC ACID
     Indication: Product used for unknown indication
     Dosage: 25 MG
  63. FOLIC ACID [Suspect]
     Active Substance: FOLIC ACID
     Dosage: 0.5 MG
  64. FOLIC ACID [Suspect]
     Active Substance: FOLIC ACID
     Dosage: ROUTE: UNKNOWN
  65. FOLIC ACID [Suspect]
     Active Substance: FOLIC ACID
     Dosage: ROUTE: UNKNOWN
  66. FOLIC ACID [Suspect]
     Active Substance: FOLIC ACID
     Dosage: 1 MG
  67. FOLIC ACID [Suspect]
     Active Substance: FOLIC ACID
     Dosage: 1 MG
  68. FOLIC ACID [Suspect]
     Active Substance: FOLIC ACID
     Dosage: ROUTE: UNKNOWN
  69. FOLIC ACID [Suspect]
     Active Substance: FOLIC ACID
     Dosage: 1 G
  70. FOLIC ACID [Suspect]
     Active Substance: FOLIC ACID
     Dosage: 15 MG
  71. FOLIC ACID [Suspect]
     Active Substance: FOLIC ACID
     Dosage: ROUTE: UNKNOWN
  72. FOLIC ACID [Suspect]
     Active Substance: FOLIC ACID
     Dosage: ROUTE: UNKNOWN
  73. HYDROCORTISONE SODIUM PHOSPHATE [Suspect]
     Active Substance: HYDROCORTISONE SODIUM PHOSPHATE
     Indication: Rheumatoid arthritis
     Dosage: ROUTE: UNKNOWN
  74. LAMICTAL [Suspect]
     Active Substance: LAMOTRIGINE
     Indication: Product used for unknown indication
     Dosage: 50 MG, QD
  75. CETIRIZINE [Suspect]
     Active Substance: CETIRIZINE HYDROCHLORIDE
     Indication: Product used for unknown indication
     Dosage: ROUTE: UNKNOWN
  76. CETIRIZINE [Suspect]
     Active Substance: CETIRIZINE HYDROCHLORIDE
     Dosage: ROUTE: UNKNOWN
  77. INFLIXIMAB [Suspect]
     Active Substance: INFLIXIMAB
     Indication: Rheumatoid arthritis
     Dosage: ROUTE: UNKNOWN
  78. NAPROXEN [Suspect]
     Active Substance: NAPROXEN
     Indication: Product used for unknown indication
     Dosage: ROUTE: UNKNOWN
  79. NAPROXEN [Suspect]
     Active Substance: NAPROXEN
     Dosage: ROUTE: UNKNOWN
  80. NAPROXEN [Suspect]
     Active Substance: NAPROXEN
     Dosage: ROUTE: UNKNOWN
  81. TOPICORT [Suspect]
     Active Substance: DESOXIMETASONE
     Indication: Product used for unknown indication
     Dosage: ROUTE: UNKNOWN
  82. TOPICORT [Suspect]
     Active Substance: DESOXIMETASONE
     Dosage: ROUTE: UNKNOWN
  83. TOPICORT [Suspect]
     Active Substance: DESOXIMETASONE
     Dosage: ROUTE: UNKNOWN
  84. TOPICORT [Suspect]
     Active Substance: DESOXIMETASONE
     Dosage: ROUTE: UNKNOWN
  85. TOPICORT [Suspect]
     Active Substance: DESOXIMETASONE
     Dosage: ROUTE: UNKNOWN
  86. TOPICORT [Suspect]
     Active Substance: DESOXIMETASONE
     Dosage: ROUTE: UNKNOWN
  87. TRAZODONE [Suspect]
     Active Substance: TRAZODONE HYDROCHLORIDE
     Indication: Product used for unknown indication
     Dosage: ROUTE: UNKNOWN

REACTIONS (54)
  - Systemic lupus erythematosus [Fatal]
  - Abdominal discomfort [Fatal]
  - Discomfort [Fatal]
  - Joint range of motion decreased [Fatal]
  - Gait disturbance [Fatal]
  - Blood cholesterol increased [Fatal]
  - Dislocation of vertebra [Fatal]
  - Arthralgia [Fatal]
  - Wound [Fatal]
  - Condition aggravated [Fatal]
  - Delirium [Fatal]
  - C-reactive protein abnormal [Fatal]
  - Adjustment disorder with depressed mood [Fatal]
  - Duodenal ulcer perforation [Fatal]
  - Wheezing [Fatal]
  - Decreased appetite [Fatal]
  - Hypoaesthesia [Fatal]
  - Blister [Fatal]
  - Pemphigus [Fatal]
  - Swelling [Fatal]
  - Hypertension [Fatal]
  - Bursitis [Fatal]
  - Alopecia [Fatal]
  - Hand deformity [Fatal]
  - Grip strength decreased [Fatal]
  - Abdominal pain [Fatal]
  - Dry mouth [Fatal]
  - Type 2 diabetes mellitus [Fatal]
  - General physical health deterioration [Fatal]
  - Drug intolerance [Fatal]
  - Wound infection [Fatal]
  - Vomiting [Fatal]
  - Ear pain [Fatal]
  - Drug hypersensitivity [Fatal]
  - Synovitis [Fatal]
  - Depression [Fatal]
  - Amnesia [Fatal]
  - Anxiety [Fatal]
  - Rash [Fatal]
  - Anti-cyclic citrullinated peptide antibody positive [Fatal]
  - Helicobacter infection [Fatal]
  - Fatigue [Fatal]
  - Breast cancer stage III [Fatal]
  - Hepatic enzyme increased [Fatal]
  - Pericarditis [Fatal]
  - Fibromyalgia [Fatal]
  - Glossodynia [Fatal]
  - Arthropathy [Fatal]
  - Diarrhoea [Fatal]
  - Dyspnoea [Fatal]
  - Asthenia [Fatal]
  - Maternal exposure during pregnancy [Fatal]
  - Live birth [Fatal]
  - Intentional product use issue [Fatal]
